FAERS Safety Report 16991641 (Version 1)
Quarter: 2019Q4

REPORT INFORMATION
  Report Type: Spontaneous
  Country: CN (occurrence: CN)
  Receive Date: 20191104
  Receipt Date: 20191104
  Transmission Date: 20200122
  Serious: Yes (Hospitalization)
  Sender: FDA-Public Use
  Company Number: CN-BAXTER-2019BAX021749

PATIENT
  Age: 59 Year
  Sex: Female
  Weight: 56 kg

DRUGS (14)
  1. 0.9% SODIUM CHLORIDE INJECTION [Suspect]
     Active Substance: SODIUM CHLORIDE
     Indication: MEDICATION DILUTION
     Dosage: AC REGIMEN: 0.9% SODIUM CHLORIDE + CYCLOPHOSPHAMIDE 0.942 G
     Route: 041
     Dates: start: 20190926, end: 20190926
  2. ENDOXAN [Suspect]
     Active Substance: CYCLOPHOSPHAMIDE
     Dosage: DOSE RE-INTRODUCED (AC REGIMEN REDUCED TO 80%)
     Route: 041
  3. STERILE WATER [Suspect]
     Active Substance: WATER
     Indication: MEDICATION DILUTION
     Dosage: AC REGIMEN: STERILIZED WATER + DOXORUBICIN HYDROCHLORIDE 94 MG
     Route: 042
     Dates: start: 20190926, end: 20190926
  4. STERILE WATER [Suspect]
     Active Substance: WATER
     Dosage: DOSE RE-INTRODUCED (DOSE REDUCED TO 80% IN AC REGIMEN): STERILIZED WATER + DOXORUBICIN HYDROCHLORIDE
     Route: 042
  5. DEXAMETHASONE SODIUM PHOSPHATE. [Suspect]
     Active Substance: DEXAMETHASONE SODIUM PHOSPHATE
     Indication: PROPHYLAXIS OF NAUSEA AND VOMITING
     Route: 042
     Dates: start: 20190926, end: 20190926
  6. DOXORUBICIN HYDROCHLORIDE. [Suspect]
     Active Substance: DOXORUBICIN HYDROCHLORIDE
     Indication: INVASIVE BREAST CARCINOMA
     Dosage: AC REGIMEN: STERILIZED WATER 47 ML + DOXORUBICIN HYDROCHLORIDE
     Route: 042
     Dates: start: 20190926, end: 20190926
  7. ENDOXAN [Suspect]
     Active Substance: CYCLOPHOSPHAMIDE
     Indication: INVASIVE BREAST CARCINOMA
     Dosage: AC REGIMEN: 0.9% SODIUM CHLORIDE 100 ML + CYCLOPHOSPHAMIDE
     Route: 041
     Dates: start: 20190926, end: 20190926
  8. 0.9% SODIUM CHLORIDE INJECTION [Suspect]
     Active Substance: SODIUM CHLORIDE
     Dosage: DOSE RE-INTRODUCED (AC REGIMEN REDUCED TO 80%): 0.9% SODIUM CHLORIDE + CYCLOPHOSPHAMIDE
     Route: 041
  9. EMEND [Suspect]
     Active Substance: APREPITANT
     Indication: PROPHYLAXIS OF NAUSEA AND VOMITING
     Route: 048
     Dates: start: 20190926, end: 20190926
  10. DEXAMETHASONE SODIUM PHOSPHATE. [Suspect]
     Active Substance: DEXAMETHASONE SODIUM PHOSPHATE
     Dosage: DOSE RE-INTRODUCED
     Route: 042
  11. NUOWEI [Suspect]
     Active Substance: PALONOSETRON HYDROCHLORIDE
     Dosage: DOSE RE-INTRODUCED
     Route: 042
  12. EMEND [Suspect]
     Active Substance: APREPITANT
     Dosage: DOSE RE-INTRODUCED
     Route: 048
  13. DOXORUBICIN HYDROCHLORIDE. [Suspect]
     Active Substance: DOXORUBICIN HYDROCHLORIDE
     Dosage: DOSE RE-INTRODUCED (DOSE REDUCED TO 80% IN AC REGIMEN): STERILIZED WATER + DOXORUBICIN HYDROCHLORIDE
     Route: 042
  14. NUOWEI [Suspect]
     Active Substance: PALONOSETRON HYDROCHLORIDE
     Indication: PROPHYLAXIS OF NAUSEA AND VOMITING
     Route: 042
     Dates: start: 20190926, end: 20190926

REACTIONS (3)
  - Haematuria [Recovering/Resolving]
  - Vomiting [Unknown]
  - Nausea [Unknown]

NARRATIVE: CASE EVENT DATE: 20190926
